FAERS Safety Report 7937629-X (Version None)
Quarter: 2011Q4

REPORT INFORMATION
  Report Type: 
  Country: None (occurrence: None)
  Receive Date: 20111123
  Receipt Date: 20111024
  Transmission Date: 20120403
  Serious: No
  Sender: FDA-Public Use
  Company Number: US-BAYER-2011-103562

PATIENT
  Age: 69 Year
  Sex: Male

DRUGS (5)
  1. LEVITRA [Suspect]
     Indication: ERECTILE DYSFUNCTION
     Dosage: 20 MG, UNK
     Route: 048
  2. PEPSID [Concomitant]
  3. LOVASTATIN [Concomitant]
  4. VICODIN [Concomitant]
  5. PREVISET [Concomitant]

REACTIONS (1)
  - DRUG INEFFECTIVE [None]
